FAERS Safety Report 24860024 (Version 3)
Quarter: 2025Q1

REPORT INFORMATION
  Report Type: Spontaneous
  Country: JP (occurrence: JP)
  Receive Date: 20250119
  Receipt Date: 20250214
  Transmission Date: 20250409
  Serious: Yes (Other)
  Sender: TAKEDA
  Company Number: JP-TAKEDA-2025TUS005069

PATIENT
  Age: 62 Year
  Sex: Female

DRUGS (8)
  1. LIALDA [Suspect]
     Active Substance: MESALAMINE
     Indication: Colitis ulcerative
     Dosage: 3600 MILLIGRAM, QD
     Dates: start: 20241115
  2. LIALDA [Suspect]
     Active Substance: MESALAMINE
     Dosage: 4800 MILLIGRAM, QD
     Dates: start: 20241213, end: 20241227
  3. BUDESONIDE [Suspect]
     Active Substance: BUDESONIDE
     Indication: Colitis ulcerative
     Dosage: 9 MILLIGRAM, QD
     Dates: start: 20241213, end: 20241227
  4. PENTASA [Concomitant]
     Active Substance: MESALAMINE
     Indication: Colitis ulcerative
     Dosage: 1 DOSAGE FORM, QD
  5. MIROGABALIN BESYLATE [Concomitant]
     Active Substance: MIROGABALIN BESYLATE
     Indication: Back pain
  6. NEUROTROPIN [Concomitant]
     Active Substance: NEUROTROPIN
     Indication: Back pain
  7. HERBALS [Concomitant]
     Active Substance: HERBALS
     Indication: Back pain
  8. SYMBICORT [Concomitant]
     Active Substance: BUDESONIDE\FORMOTEROL FUMARATE DIHYDRATE
     Indication: Product used for unknown indication

REACTIONS (2)
  - Condition aggravated [Unknown]
  - Eosinophilic pneumonia [Unknown]

NARRATIVE: CASE EVENT DATE: 20241201
